FAERS Safety Report 8265806-X (Version None)
Quarter: 2012Q2

REPORT INFORMATION
  Report Type: 
  Country: None (occurrence: None)
  Receive Date: 20120406
  Receipt Date: 20120330
  Transmission Date: 20120825
  Serious: Yes (Hospitalization, Other)
  Sender: FDA-Public Use
  Company Number: US-US-EMD SERONO, INC.-230474J08USA

PATIENT
  Sex: Female
  Weight: 64 kg

DRUGS (6)
  1. ALDACTONE [Concomitant]
     Indication: HYPERTENSION
     Route: 065
     Dates: start: 20061201
  2. REBIF [Suspect]
     Indication: MULTIPLE SCLEROSIS
     Route: 058
     Dates: start: 20071010, end: 20110301
  3. TOPAMAX [Concomitant]
     Indication: CONVULSION
     Route: 065
     Dates: start: 20070901, end: 20080101
  4. COREG [Concomitant]
     Indication: HYPERTENSION
     Route: 065
     Dates: start: 20061201
  5. REBIF [Suspect]
     Route: 058
     Dates: end: 20111201
  6. STEROIDS [Suspect]
     Indication: PRODUCT USED FOR UNKNOWN INDICATION

REACTIONS (5)
  - COMPLEX PARTIAL SEIZURES [None]
  - INJECTION SITE PAIN [None]
  - BLOOD GLUCOSE INCREASED [None]
  - FATIGUE [None]
  - MULTIPLE SCLEROSIS RELAPSE [None]
